FAERS Safety Report 10390071 (Version 2)
Quarter: 2014Q3

REPORT INFORMATION
  Report Type: Spontaneous
  Country: US (occurrence: None)
  Receive Date: 20140814
  Receipt Date: 20140902
  Transmission Date: 20150326
  Serious: Yes (Death)
  Sender: FDA-Public Use
  Company Number: CIO14054312

PATIENT
  Age: 68 Year
  Sex: Female

DRUGS (2)
  1. ALL OTHER THERAPEUTIC PRODUCTS [Concomitant]
     Active Substance: UNSPECIFIED INGREDIENT
  2. SINEX VAPO SPRAY MOISTURIZING 12 HOUR DECONGESTANT ULTRA FINE MIST (ALOE VERA EXTRACT 0.100%, EUCALYPTUS OIL 0.013%, MENTHOL 0.015%, OXYMETAZOLINE HYDROCHLORIDE 0.050%, OXYMETAZOLINE HYDROCHLORIDE 0.050%, SORBITOL 5.0% NASAL SPRAY, SOLUTION, 1-2 SPRA Y [Suspect]
     Active Substance: OXYMETAZOLINE HYDROCHLORIDE

REACTIONS (1)
  - Blood caffeine increased [None]
